FAERS Safety Report 5080778-7 (Version None)
Quarter: 2006Q3

REPORT INFORMATION
  Report Type: 
  Country: None (occurrence: None)
  Receive Date: 20060809
  Receipt Date: 20060725
  Transmission Date: 20061208
  Serious: Yes (Hospitalization)
  Sender: FDA-Public Use
  Company Number: CIP06001773

PATIENT
  Age: 83 Year
  Sex: Female

DRUGS (10)
  1. ACTONEL [Suspect]
     Indication: OSTEOPOROSIS
     Dosage: 2.5 MG DAILY, ORAL
     Route: 048
     Dates: end: 20060522
  2. STARLIX [Suspect]
     Indication: DIABETES MELLITUS
     Dosage: 90 MG, ORAL
     Route: 048
     Dates: end: 20060522
  3. PLATIBIT (ALFACALCIDOL) [Suspect]
     Dosage: 15 MCG, ORAL
     Route: 048
     Dates: end: 20060522
  4. VIT K CAP [Suspect]
     Indication: OSTEOPOROSIS
     Dosage: 15 MG, ORAL
     Route: 048
     Dates: end: 20060522
  5. PRORENAL (LIMAPROST) [Suspect]
     Dosage: 15 MCG, ORAL
     Route: 048
     Dates: end: 20060522
  6. NEUROVITAN (OCTOTIAMINE, CYANOCOBALAMIN, RIBOFLAVIN, PYRIDOXINE HYDROC [Suspect]
     Dosage: ORAL
     Route: 048
     Dates: end: 20060522
  7. DICLOFENAC (DICLOFENAC) [Suspect]
  8. DEPAS (ETIZOLAM) [Suspect]
     Indication: INSOMNIA
     Dosage: 0.5 MG, ORAL
     Route: 048
     Dates: end: 20060522
  9. TORSEMIDE [Suspect]
     Indication: CARDIAC FAILURE
     Dosage: 4 MG, ORAL
     Route: 048
     Dates: end: 20060522
  10. DIAZEPAM [Suspect]
     Indication: INSOMNIA
     Dosage: ORAL
     Route: 048
     Dates: end: 20060522

REACTIONS (16)
  - ALANINE AMINOTRANSFERASE INCREASED [None]
  - ANOREXIA [None]
  - ASPARTATE AMINOTRANSFERASE INCREASED [None]
  - BILIRUBIN CONJUGATED INCREASED [None]
  - BLOOD ALKALINE PHOSPHATASE INCREASED [None]
  - BLOOD BILIRUBIN INCREASED [None]
  - BLOOD LACTATE DEHYDROGENASE INCREASED [None]
  - GAMMA-GLUTAMYLTRANSFERASE INCREASED [None]
  - GASTRITIS [None]
  - HAEMATOCRIT DECREASED [None]
  - HAEMOGLOBIN DECREASED [None]
  - JAUNDICE [None]
  - LIVER DISORDER [None]
  - PROTEIN TOTAL DECREASED [None]
  - RED BLOOD CELL COUNT DECREASED [None]
  - WHITE BLOOD CELL COUNT DECREASED [None]
